FAERS Safety Report 25555408 (Version 1)
Quarter: 2025Q3

REPORT INFORMATION
  Report Type: Spontaneous
  Country: EU (occurrence: EU)
  Receive Date: 20250715
  Receipt Date: 20250715
  Transmission Date: 20251021
  Serious: Yes (Other)
  Sender: MYLAN
  Company Number: EU-ARISTO PHARMA-EBAS-MELP-PREG202506231

PATIENT
  Age: 68 Year
  Sex: Female

DRUGS (12)
  1. PREGABALIN [Interacting]
     Active Substance: PREGABALIN
     Indication: Product used for unknown indication
  2. PREGABALIN [Interacting]
     Active Substance: PREGABALIN
     Route: 065
  3. PREGABALIN [Interacting]
     Active Substance: PREGABALIN
     Route: 065
  4. PREGABALIN [Interacting]
     Active Substance: PREGABALIN
  5. EBASTINE [Interacting]
     Active Substance: EBASTINE
     Indication: Hypersensitivity
     Dosage: 1 DOSAGE FORM, QD (1X DAILY 10 MG)
     Dates: start: 20250621, end: 20250621
  6. EBASTINE [Interacting]
     Active Substance: EBASTINE
     Dosage: 1 DOSAGE FORM, QD (1X DAILY 10 MG)
     Route: 048
     Dates: start: 20250621, end: 20250621
  7. EBASTINE [Interacting]
     Active Substance: EBASTINE
     Dosage: 1 DOSAGE FORM, QD (1X DAILY 10 MG)
     Route: 048
     Dates: start: 20250621, end: 20250621
  8. EBASTINE [Interacting]
     Active Substance: EBASTINE
     Dosage: 1 DOSAGE FORM, QD (1X DAILY 10 MG)
     Dates: start: 20250621, end: 20250621
  9. MELPERONE [Interacting]
     Active Substance: MELPERONE
     Indication: Product used for unknown indication
  10. MELPERONE [Interacting]
     Active Substance: MELPERONE
     Route: 065
  11. MELPERONE [Interacting]
     Active Substance: MELPERONE
     Route: 065
  12. MELPERONE [Interacting]
     Active Substance: MELPERONE

REACTIONS (5)
  - Palpitations [Recovered/Resolved]
  - Headache [Recovered/Resolved]
  - Somnolence [Recovered/Resolved]
  - Hypertension [Recovered/Resolved]
  - Drug interaction [Unknown]

NARRATIVE: CASE EVENT DATE: 20250621
